FAERS Safety Report 15074237 (Version 1)
Quarter: 2018Q2

REPORT INFORMATION
  Report Type: Spontaneous
  Country: CN (occurrence: CN)
  Receive Date: 20180627
  Receipt Date: 20180627
  Transmission Date: 20180711
  Serious: Yes (Other)
  Sender: FDA-Public Use
  Company Number: CN-ASTRAZENECA-2018SE82195

PATIENT
  Age: 4 Year
  Sex: Male

DRUGS (3)
  1. PULMICORT RESPULES [Suspect]
     Active Substance: BUDESONIDE
     Route: 055
  2. BRICANYL [Suspect]
     Active Substance: TERBUTALINE SULFATE
     Route: 055
  3. YITANJING [Concomitant]
     Route: 048

REACTIONS (2)
  - Pollakiuria [Recovered/Resolved]
  - Anuria [Recovered/Resolved]

NARRATIVE: CASE EVENT DATE: 20180619
